FAERS Safety Report 6171747-4 (Version None)
Quarter: 2009Q2

REPORT INFORMATION
  Report Type: 
  Country: None (occurrence: None)
  Receive Date: 20090428
  Receipt Date: 20090428
  Transmission Date: 20091009
  Serious: No
  Sender: FDA-Public Use
  Company Number: None

PATIENT
  Age: 50 Year
  Sex: Female
  Weight: 90.7194 kg

DRUGS (1)
  1. TRIAMTERENE AND HYDROCHLOROTHIAZIDE [Suspect]
     Indication: HYPERTENSION
     Dosage: 1 PER DAY PO
     Route: 048
     Dates: start: 20090424, end: 20090425

REACTIONS (9)
  - CHILLS [None]
  - DECREASED APPETITE [None]
  - DRY MOUTH [None]
  - HEART RATE INCREASED [None]
  - MUSCLE SPASMS [None]
  - MUSCULAR WEAKNESS [None]
  - ORAL PAIN [None]
  - PALPITATIONS [None]
  - PANIC ATTACK [None]
